FAERS Safety Report 8769288 (Version 6)
Quarter: 2013Q3

REPORT INFORMATION
  Report Type: Spontaneous
  Country: US (occurrence: US)
  Receive Date: 20120905
  Receipt Date: 20130711
  Transmission Date: 20140515
  Serious: Yes (Hospitalization, Disabling, Other)
  Sender: FDA-Public Use
  Company Number: US-009507513-1208USA011021

PATIENT
  Sex: Female
  Weight: 63.39 kg

DRUGS (17)
  1. FOSAMAX [Suspect]
     Indication: OSTEOPOROSIS
     Dosage: 10 MG, QD
     Route: 048
     Dates: start: 1996, end: 200202
  2. FOSAMAX [Suspect]
     Indication: OSTEOPENIA
     Dosage: 70 MG, QW
     Route: 048
     Dates: start: 2002
  3. ALENDRONATE SODIUM [Suspect]
     Indication: OSTEOPOROSIS
     Dosage: 70 MG, QW
     Route: 048
     Dates: start: 200803, end: 20110131
  4. ALENDRONATE SODIUM [Suspect]
     Indication: OSTEOPENIA
  5. SINGULAIR [Concomitant]
     Indication: HYPERSENSITIVITY
     Dosage: UNK
     Route: 048
     Dates: start: 2002
  6. VITAMINS (UNSPECIFIED) [Concomitant]
     Dosage: 1 DF, QD
     Dates: start: 1995
  7. GLUCOSAMINE [Concomitant]
     Dosage: 1500 MG, BID
     Dates: start: 1990
  8. VITAMIN E [Concomitant]
     Dosage: 1 DF, QD
  9. OMEGA-3 MARINE TRIGLYCERIDES [Concomitant]
     Dosage: 1000 MG, QD
     Dates: start: 1998
  10. PREVACID [Concomitant]
     Dosage: UNK
     Dates: start: 1997
  11. CHOLECALCIFEROL [Concomitant]
     Indication: OSTEOPOROSIS
     Dosage: 400 IU, QD
     Dates: start: 19950512
  12. CALCIUM (UNSPECIFIED) (+) VITAMIN D (UNSPECIFIED) [Concomitant]
     Indication: OSTEOPOROSIS
  13. CALCIUM (UNSPECIFIED) [Concomitant]
     Indication: OSTEOPOROSIS
     Dosage: 1000 MG, QD
     Dates: start: 19950512
  14. CALCIUM (UNSPECIFIED) [Concomitant]
     Indication: OSTEOPENIA
  15. PROGESTERONE [Concomitant]
     Indication: HORMONE REPLACEMENT THERAPY
  16. PREMARIN [Concomitant]
     Indication: HORMONE REPLACEMENT THERAPY
     Dosage: 0.625-1.25 MG
     Dates: start: 19941111
  17. OGEN [Concomitant]

REACTIONS (25)
  - Femur fracture [Not Recovered/Not Resolved]
  - Intramedullary rod insertion [Unknown]
  - Femur fracture [Not Recovered/Not Resolved]
  - Intramedullary rod insertion [Not Recovered/Not Resolved]
  - Osteoporosis [Unknown]
  - Knee arthroplasty [Unknown]
  - Nephrectomy [Unknown]
  - Knee arthroplasty [Unknown]
  - Back pain [Not Recovered/Not Resolved]
  - Foot fracture [Unknown]
  - Hypercholesterolaemia [Unknown]
  - Depression [Unknown]
  - Anxiety [Unknown]
  - Medical device implantation [Unknown]
  - Barrett^s oesophagus [Unknown]
  - Diverticulum [Unknown]
  - Synovitis [Unknown]
  - Deep vein thrombosis [Unknown]
  - Hypertension [Unknown]
  - Electrocardiogram T wave abnormal [Unknown]
  - Hysterectomy [Unknown]
  - Compression fracture [Unknown]
  - Dizziness [Unknown]
  - Gastrooesophageal reflux disease [Unknown]
  - Gastritis [Unknown]
